FAERS Safety Report 13578642 (Version 1)
Quarter: 2017Q2

REPORT INFORMATION
  Report Type: Spontaneous
  Country: US (occurrence: US)
  Receive Date: 20170524
  Receipt Date: 20170524
  Transmission Date: 20170830
  Serious: Yes (Disabling)
  Sender: FDA-Public Use
  Company Number: US-009507513-1705USA005199

PATIENT
  Age: 59 Year
  Sex: Male
  Weight: 85.49 kg

DRUGS (1)
  1. BELSOMRA [Suspect]
     Active Substance: SUVOREXANT
     Indication: INSOMNIA
     Route: 048

REACTIONS (2)
  - Product use issue [Unknown]
  - Sleep sex [Not Recovered/Not Resolved]

NARRATIVE: CASE EVENT DATE: 20161101
